FAERS Safety Report 15632562 (Version 1)
Quarter: 2018Q4

REPORT INFORMATION
  Report Type: Spontaneous
  Country: US (occurrence: US)
  Receive Date: 20181119
  Receipt Date: 20181119
  Transmission Date: 20190205
  Serious: Yes (Other)
  Sender: FDA-Public Use
  Company Number: US-BAYER-2018-212317

PATIENT
  Age: 26 Year
  Sex: Female

DRUGS (2)
  1. MIDOL IB [Concomitant]
  2. MIRENA [Suspect]
     Active Substance: LEVONORGESTREL
     Indication: MENORRHAGIA
     Dosage: 20 MCG/24HR, CONT
     Route: 015
     Dates: start: 201407

REACTIONS (2)
  - Abdominal pain upper [Not Recovered/Not Resolved]
  - Genital haemorrhage [Not Recovered/Not Resolved]
